FAERS Safety Report 5028586-7 (Version None)
Quarter: 2006Q2

REPORT INFORMATION
  Report Type: 
  Country: None (occurrence: None)
  Receive Date: 20060615
  Receipt Date: 20060615
  Transmission Date: 20061013
  Serious: Yes (Hospitalization)
  Sender: FDA-Public Use
  Company Number: None

PATIENT
  Age: 82 Year
  Sex: Female
  Weight: 68 kg

DRUGS (11)
  1. NAPROXEN [Suspect]
     Indication: OSTEOARTHRITIS
     Dosage: 500MG PO BID PRN CHRONIC
     Route: 048
  2. NORVASC [Concomitant]
  3. LIPITOR [Concomitant]
  4. CLONIDINE [Concomitant]
  5. LOPID [Concomitant]
  6. ZESTRIL [Concomitant]
  7. AVANDIA [Concomitant]
  8. STARLIX [Concomitant]
  9. GLUCOVANCE [Concomitant]
  10. TYLENOL (CAPLET) [Concomitant]
  11. IRON [Concomitant]

REACTIONS (5)
  - ANAEMIA [None]
  - ASTHENIA [None]
  - GASTRIC ULCER [None]
  - GASTRITIS EROSIVE [None]
  - MELAENA [None]
